FAERS Safety Report 16139185 (Version 3)
Quarter: 2019Q2

REPORT INFORMATION
  Report Type: Spontaneous
  Country: US (occurrence: US)
  Receive Date: 20190401
  Receipt Date: 20190603
  Transmission Date: 20190711
  Serious: No
  Sender: FDA-Public Use
  Company Number: US-BAYER-2019-063657

PATIENT
  Age: 40 Year
  Sex: Female

DRUGS (2)
  1. MIRENA [Suspect]
     Active Substance: LEVONORGESTREL
     Indication: MENORRHAGIA
  2. MIRENA [Suspect]
     Active Substance: LEVONORGESTREL
     Indication: MENORRHAGIA
     Dosage: 20 MCG/24HR, CONT
     Route: 015
     Dates: start: 20170321, end: 2019

REACTIONS (5)
  - Device expulsion [Recovered/Resolved]
  - Complication of device removal [None]
  - Menometrorrhagia [None]
  - Pelvic pain [None]
  - Device difficult to use [None]

NARRATIVE: CASE EVENT DATE: 201903
